FAERS Safety Report 7406034-7 (Version None)
Quarter: 2011Q2

REPORT INFORMATION
  Report Type: 
  Country: None (occurrence: None)
  Receive Date: 20110411
  Receipt Date: 20110405
  Transmission Date: 20111010
  Serious: Yes (Other)
  Sender: FDA-Public Use
  Company Number: A0918030A

PATIENT
  Age: 68 Year
  Sex: Male

DRUGS (6)
  1. ADVAIR HFA [Suspect]
     Indication: CHRONIC OBSTRUCTIVE PULMONARY DISEASE
     Dosage: 1PUFF TWICE PER DAY
     Route: 055
     Dates: start: 20050101
  2. ALBUTEROL [Concomitant]
  3. SPIRIVA [Concomitant]
  4. OXYGEN [Concomitant]
  5. INSULIN [Concomitant]
  6. THEOPHYLLINE [Concomitant]

REACTIONS (3)
  - PNEUMONIA [None]
  - OXYGEN SUPPLEMENTATION [None]
  - DYSGEUSIA [None]
